FAERS Safety Report 6683991-8 (Version None)
Quarter: 2010Q2

REPORT INFORMATION
  Report Type: 
  Country: None (occurrence: None)
  Receive Date: 20100416
  Receipt Date: 20100405
  Transmission Date: 20101027
  Serious: Yes (Other)
  Sender: FDA-Public Use
  Company Number: US-JNJFOC-20100402640

PATIENT
  Sex: Female
  Weight: 72.58 kg

DRUGS (8)
  1. REMICADE [Suspect]
     Indication: RHEUMATOID ARTHRITIS
     Dosage: RECEIVED 50 INFUSIONS
     Route: 042
  2. METHOTREXATE [Concomitant]
  3. ALBUTEROL [Concomitant]
     Route: 055
  4. MULTIPLE VITAMIN [Concomitant]
     Route: 048
  5. RESTASIS [Concomitant]
     Route: 047
  6. TOPROL-XL [Concomitant]
     Route: 048
  7. TRAMADOL HCL [Concomitant]
     Indication: PAIN
     Route: 048
  8. ZOLPIDEM TARTRATE [Concomitant]
     Route: 048

REACTIONS (12)
  - ABDOMINAL PAIN [None]
  - CHEST PAIN [None]
  - COLONIC POLYP [None]
  - DEHYDRATION [None]
  - DIARRHOEA [None]
  - DIZZINESS [None]
  - DRUG INEFFECTIVE [None]
  - HISTOPLASMOSIS [None]
  - LEUKOCYTOSIS [None]
  - NAUSEA [None]
  - PALPITATIONS [None]
  - VOMITING [None]
